FAERS Safety Report 23130472 (Version 1)
Quarter: 2023Q4

REPORT INFORMATION
  Report Type: Spontaneous
  Country: US (occurrence: US)
  Receive Date: 20231031
  Receipt Date: 20231031
  Transmission Date: 20240109
  Serious: No
  Sender: FDA-Public Use
  Company Number: US-UNIQUE PHARMACEUTICAL LABORATORIES, A DIV. OF JBCPL-2023UNI000033

PATIENT
  Sex: Female
  Weight: 77.098 kg

DRUGS (3)
  1. ATENOLOL [Suspect]
     Active Substance: ATENOLOL
     Indication: Migraine
     Dosage: UNK UNK, QD
     Route: 048
     Dates: start: 20230623
  2. LEVOTHYROXINE [Concomitant]
     Active Substance: LEVOTHYROXINE
     Indication: Product used for unknown indication
     Dosage: UNK
     Route: 065
  3. ESTROGENS [Concomitant]
     Active Substance: ESTROGENS
     Indication: Product used for unknown indication
     Dosage: UNK
     Route: 065

REACTIONS (2)
  - Heart rate increased [Unknown]
  - Drug ineffective for unapproved indication [Unknown]
